FAERS Safety Report 6470600-6 (Version None)
Quarter: 2009Q4

REPORT INFORMATION
  Report Type: 
  Country: None (occurrence: None)
  Receive Date: 20091203
  Receipt Date: 20090119
  Transmission Date: 20100525
  Serious: No
  Sender: FDA-Public Use
  Company Number: US-ABBOTT-09P-163-0498667-00

PATIENT
  Sex: Female

DRUGS (1)
  1. MERIDIA [Suspect]
     Indication: DRUG USE FOR UNKNOWN INDICATION

REACTIONS (3)
  - CONSTIPATION [None]
  - DRY MOUTH [None]
  - HEADACHE [None]
